FAERS Safety Report 7466752-1 (Version None)
Quarter: 2011Q2

REPORT INFORMATION
  Report Type: 
  Country: None (occurrence: None)
  Receive Date: 20110509
  Receipt Date: 20100824
  Transmission Date: 20111010
  Serious: Yes (Other)
  Sender: FDA-Public Use
  Company Number: US-ALEXION-A201001062

PATIENT
  Sex: Male

DRUGS (10)
  1. CANASA [Concomitant]
     Indication: CROHN'S DISEASE
     Dosage: UNK
  2. EFFEXOR XR [Concomitant]
     Indication: ANXIETY
     Dosage: UNK
  3. EFFEXOR XR [Concomitant]
     Indication: DYSTHYMIC DISORDER
  4. MULTI-VITAMINS [Concomitant]
     Dosage: UNK
  5. ASACOL [Concomitant]
     Indication: CROHN'S DISEASE
     Dosage: UNK
  6. LOPERAMIDE [Concomitant]
     Indication: DIARRHOEA
     Dosage: UNK
  7. PREDNISONE [Concomitant]
     Indication: CROHN'S DISEASE
     Dosage: UNK
  8. SOLIRIS [Suspect]
     Indication: PAROXYSMAL NOCTURNAL HAEMOGLOBINURIA
     Dosage: 1500 MG, Q2W
     Route: 042
  9. WELCHOL [Concomitant]
     Indication: CROHN'S DISEASE
     Dosage: UNK
  10. NEXIUM [Concomitant]
     Dosage: UNK

REACTIONS (2)
  - FATIGUE [None]
  - HAEMOGLOBIN DECREASED [None]
